FAERS Safety Report 5685857-9 (Version None)
Quarter: 2008Q1

REPORT INFORMATION
  Report Type: 
  Country: None (occurrence: None)
  Receive Date: 20080328
  Receipt Date: 20080313
  Transmission Date: 20080703
  Serious: Yes (Other)
  Sender: FDA-Public Use
  Company Number: US-BAYER-200814461NA

PATIENT
  Age: 41 Year
  Sex: Female

DRUGS (1)
  1. AVELOX [Suspect]
     Indication: BRONCHITIS
     Dosage: TOTAL DAILY DOSE: 400 MG  UNIT DOSE: 400 MG
     Route: 048
     Dates: start: 20080225, end: 20080301

REACTIONS (4)
  - ANXIETY [None]
  - OESOPHAGEAL DISORDER [None]
  - PALPITATIONS [None]
  - TACHYCARDIA [None]
